FAERS Safety Report 16928633 (Version 9)
Quarter: 2025Q3

REPORT INFORMATION
  Report Type: Report from Study
  Country: US (occurrence: US)
  Receive Date: 20191017
  Receipt Date: 20250717
  Transmission Date: 20251021
  Serious: No
  Sender: TAKEDA
  Company Number: US-SHIRE-US201934742

PATIENT
  Age: 66 Year
  Sex: Female
  Weight: 95 kg

DRUGS (58)
  1. HUMAN IMMUNOGLOBULIN G [Suspect]
     Active Substance: HUMAN IMMUNOGLOBULIN G
     Indication: Immunodeficiency common variable
     Dosage: 110 GRAM, Q4WEEKS
     Dates: start: 20141205
  2. HUMAN IMMUNOGLOBULIN G [Suspect]
     Active Substance: HUMAN IMMUNOGLOBULIN G
     Indication: Immunodeficiency
     Dosage: 110 GRAM, Q4WEEKS
     Dates: start: 20180129
  3. HUMAN IMMUNOGLOBULIN G [Suspect]
     Active Substance: HUMAN IMMUNOGLOBULIN G
     Dosage: 110 GRAM, Q4WEEKS
     Dates: start: 20180202
  4. HUMAN IMMUNOGLOBULIN G [Suspect]
     Active Substance: HUMAN IMMUNOGLOBULIN G
     Dosage: 100 GRAM, Q4WEEKS
  5. HUMAN IMMUNOGLOBULIN G [Suspect]
     Active Substance: HUMAN IMMUNOGLOBULIN G
  6. HUMAN IMMUNOGLOBULIN G [Suspect]
     Active Substance: HUMAN IMMUNOGLOBULIN G
  7. DIPHENHYDRAMINE [Concomitant]
     Active Substance: DIPHENHYDRAMINE
  8. HEPARIN [Concomitant]
     Active Substance: HEPARIN SODIUM
  9. SODIUM CHLORIDE [Concomitant]
     Active Substance: SODIUM CHLORIDE
  10. SODIUM CHLORIDE [Concomitant]
     Active Substance: SODIUM CHLORIDE
  11. EPINEPHRINE [Concomitant]
     Active Substance: EPINEPHRINE
  12. SHINGRIX [Concomitant]
     Active Substance: RECOMBINANT VARICELLA ZOSTER VIRUS (VZV) GLYCOPROTEIN E
  13. MIRALAX [Concomitant]
     Active Substance: POLYETHYLENE GLYCOL 3350
  14. FLUAD QUADRIVALENT NOS [Concomitant]
     Active Substance: INFLUENZA A VIRUS A/HONG KONG/2671/2019 IVR-208 (H3N2) ANTIGEN (FORMALDEHYDE INACTIVATED)\INFLUENZA
  15. PFIZER-BIONTECH COVID-19 VACCINE [Concomitant]
     Active Substance: TOZINAMERAN
  16. VABYSMO [Concomitant]
     Active Substance: FARICIMAB-SVOA
  17. MOUNJARO [Concomitant]
     Active Substance: TIRZEPATIDE
  18. GEMTESA [Concomitant]
     Active Substance: VIBEGRON
  19. ACETAMINOPHEN [Concomitant]
     Active Substance: ACETAMINOPHEN
  20. PREMARIN [Concomitant]
     Active Substance: ESTROGENS, CONJUGATED
  21. JARDIANCE [Concomitant]
     Active Substance: EMPAGLIFLOZIN
  22. VITAMIN D3 [Concomitant]
     Active Substance: CHOLECALCIFEROL
  23. NEILMED SINUS RINSE [Concomitant]
     Active Substance: SODIUM BICARBONATE\SODIUM CHLORIDE
  24. OMEGA 3 [Concomitant]
     Active Substance: CAPSAICIN
  25. METFORMIN [Concomitant]
     Active Substance: METFORMIN HYDROCHLORIDE
  26. METOPROLOL [Concomitant]
     Active Substance: METOPROLOL
  27. ALIGN [Concomitant]
     Active Substance: BIFIDOBACTERIUM LONGUM SUBSP. INFANTIS
  28. ALLEGRA [Concomitant]
     Active Substance: FEXOFENADINE HYDROCHLORIDE
  29. MUPIROCIN [Concomitant]
     Active Substance: MUPIROCIN
  30. ALENDRONATE [Concomitant]
     Active Substance: ALENDRONATE SODIUM
  31. NASACORT [Concomitant]
     Active Substance: TRIAMCINOLONE ACETONIDE
  32. PRAVASTATIN [Concomitant]
     Active Substance: PRAVASTATIN
  33. LOSARTAN [Concomitant]
     Active Substance: LOSARTAN
  34. VITAMIN C [Concomitant]
     Active Substance: ASCORBIC ACID
  35. CEFDINIR [Concomitant]
     Active Substance: CEFDINIR
  36. DYMISTA [Concomitant]
     Active Substance: AZELASTINE HYDROCHLORIDE\FLUTICASONE PROPIONATE
  37. Lmx [Concomitant]
  38. TRULICITY [Concomitant]
     Active Substance: DULAGLUTIDE
  39. AMLODIPINE BESYLATE [Concomitant]
     Active Substance: AMLODIPINE BESYLATE
  40. CLONIDINE [Concomitant]
     Active Substance: CLONIDINE
  41. SYSTANE (HYPROMELLOSE 2910 (4000 MPA.S)) [Concomitant]
     Active Substance: HYPROMELLOSE 2910 (4000 MPA.S)
  42. AZITHROMYCIN [Concomitant]
     Active Substance: AZITHROMYCIN
  43. IBUPROFEN [Concomitant]
     Active Substance: IBUPROFEN
  44. ALBUTEROL SULFATE [Concomitant]
     Active Substance: ALBUTEROL SULFATE
  45. APPLE CIDER VINEGAR [Concomitant]
     Active Substance: APPLE CIDER VINEGAR
  46. LIDOCAINE [Concomitant]
     Active Substance: LIDOCAINE
  47. CLONIDINE HYDROCHLORIDE [Concomitant]
     Active Substance: CLONIDINE HYDROCHLORIDE
  48. ADVIL [Concomitant]
     Active Substance: IBUPROFEN
  49. AVASTIN [Concomitant]
     Active Substance: BEVACIZUMAB
  50. FLUOROURACIL [Concomitant]
     Active Substance: FLUOROURACIL
  51. FISH OIL [Concomitant]
     Active Substance: FISH OIL
  52. ALLEGRA ALLERGY [Concomitant]
     Active Substance: FEXOFENADINE HYDROCHLORIDE
  53. PEPCID [Concomitant]
     Active Substance: FAMOTIDINE
  54. PRAVASTATIN SODIUM [Concomitant]
     Active Substance: PRAVASTATIN SODIUM
  55. Dulcolax [Concomitant]
  56. ALENDRONATE SODIUM [Concomitant]
     Active Substance: ALENDRONATE SODIUM
  57. METOPROLOL SUCCINATE [Concomitant]
     Active Substance: METOPROLOL SUCCINATE
  58. DIPHENHYDRAMINE HYDROCHLORIDE [Concomitant]
     Active Substance: DIPHENHYDRAMINE HYDROCHLORIDE

REACTIONS (12)
  - Body height decreased [Unknown]
  - Sinus congestion [Recovering/Resolving]
  - Dyspnoea paroxysmal nocturnal [Recovering/Resolving]
  - Infusion related reaction [Unknown]
  - Renal disorder [Unknown]
  - Respiratory tract congestion [Unknown]
  - COVID-19 [Recovering/Resolving]
  - Upper respiratory tract infection [Unknown]
  - Sinusitis [Unknown]
  - Vision blurred [Unknown]
  - Pain [Unknown]
  - Fatigue [Unknown]

NARRATIVE: CASE EVENT DATE: 20191004
